FAERS Safety Report 13965228 (Version 1)
Quarter: 2017Q3

REPORT INFORMATION
  Report Type: Spontaneous
  Country: IT (occurrence: IT)
  Receive Date: 20170913
  Receipt Date: 20170913
  Transmission Date: 20171128
  Serious: Yes (Other)
  Sender: FDA-Public Use
  Company Number: IT-SA-2017SA166527

PATIENT
  Age: 4 Year
  Sex: Male

DRUGS (8)
  1. METHYLPREDNISOLONE. [Suspect]
     Active Substance: METHYLPREDNISOLONE
     Indication: COOMBS POSITIVE HAEMOLYTIC ANAEMIA
     Route: 042
  2. THYMOGLOBULINE [Suspect]
     Active Substance: LAPINE T-LYMPHOCYTE IMMUNE GLOBULIN
     Indication: BONE MARROW CONDITIONING REGIMEN
     Route: 065
  3. CYCLOPHOSPHAMIDE. [Suspect]
     Active Substance: CYCLOPHOSPHAMIDE
     Indication: BONE MARROW CONDITIONING REGIMEN
     Route: 065
  4. METHYLPREDNISOLONE. [Suspect]
     Active Substance: METHYLPREDNISOLONE
     Indication: COOMBS POSITIVE HAEMOLYTIC ANAEMIA
     Route: 065
  5. CYCLOSPORINE. [Suspect]
     Active Substance: CYCLOSPORINE
     Indication: PROPHYLAXIS AGAINST GRAFT VERSUS HOST DISEASE
     Route: 065
  6. BUSULFAN. [Suspect]
     Active Substance: BUSULFAN
     Indication: BONE MARROW CONDITIONING REGIMEN
     Route: 065
  7. MYCOPHENOLATE MOFETIL. [Suspect]
     Active Substance: MYCOPHENOLATE MOFETIL
     Indication: THROMBOTIC THROMBOCYTOPENIC PURPURA
     Route: 065
  8. RITUXIMAB. [Suspect]
     Active Substance: RITUXIMAB
     Indication: EPSTEIN-BARR VIRUS INFECTION
     Route: 065

REACTIONS (14)
  - Graft versus host disease in skin [Recovered/Resolved]
  - Blindness [Not Recovered/Not Resolved]
  - Keratitis [Recovered/Resolved]
  - Posterior reversible encephalopathy syndrome [Recovered/Resolved]
  - Anaemia [Recovered/Resolved]
  - Computerised tomogram abnormal [Recovered/Resolved]
  - Red blood cell schistocytes present [Recovered/Resolved]
  - Lymphoedema [Not Recovered/Not Resolved]
  - Corneal scar [Recovered/Resolved]
  - Status epilepticus [Recovered/Resolved]
  - Thrombotic thrombocytopenic purpura [Recovered/Resolved]
  - Thrombocytopenia [Recovered/Resolved]
  - Coombs positive haemolytic anaemia [Recovered/Resolved]
  - Graft versus host disease in gastrointestinal tract [Recovered/Resolved]
